FAERS Safety Report 15397805 (Version 4)
Quarter: 2019Q2

REPORT INFORMATION
  Report Type: Spontaneous
  Country: US (occurrence: US)
  Receive Date: 20180918
  Receipt Date: 20190613
  Transmission Date: 20190711
  Serious: Yes (Death, Hospitalization)
  Sender: FDA-Public Use
  Company Number: US-PFIZER INC-2018373243

PATIENT
  Age: 78 Year
  Sex: Male

DRUGS (2)
  1. BOSULIF [Suspect]
     Active Substance: BOSUTINIB MONOHYDRATE
     Dosage: 400 MG, UNK
     Dates: start: 201810, end: 201810
  2. BOSULIF [Suspect]
     Active Substance: BOSUTINIB MONOHYDRATE
     Indication: LEUKAEMIA
     Dosage: 400 MG, ONCE A DAY IN THE MORNING (QAM)
     Dates: start: 20180906, end: 20180916

REACTIONS (11)
  - Taste disorder [Unknown]
  - Drug intolerance [Unknown]
  - Nausea [Unknown]
  - Death [Fatal]
  - Diarrhoea [Recovered/Resolved]
  - Fluid retention [Unknown]
  - Weight decreased [Unknown]
  - Fatigue [Unknown]
  - Decreased appetite [Unknown]
  - Infection [Unknown]
  - Weight increased [Unknown]

NARRATIVE: CASE EVENT DATE: 2018
